FAERS Safety Report 9349793 (Version 1)
Quarter: 2013Q2

REPORT INFORMATION
  Report Type: Spontaneous
  Country: NL (occurrence: None)
  Receive Date: 20130611
  Receipt Date: 20130611
  Transmission Date: 20140414
  Serious: Yes (Death, Hospitalization)
  Sender: FDA-Public Use
  Company Number: FK201301895

PATIENT
  Age: 20 Year
  Sex: Female

DRUGS (7)
  1. VALPROATE [Suspect]
     Indication: COMPLEX PARTIAL SEIZURES
     Dosage: STAT
     Route: 042
  2. RITUXIMAB (RITUXIMAB) [Concomitant]
  3. AZATHIPRINE (AZATHIOPRINE) [Concomitant]
  4. METHYLPREDNISOLONE (METHYLPREDNISOLONE) [Concomitant]
  5. CYCLOPHOSPHAMIDE (CYCLOPHOSPHAMIDE) [Concomitant]
  6. PREDNISONE (PREDNISONE) [Concomitant]
  7. HYDROXYCHLOROQUINE (HYDROXYCHLOROQUINE) [Concomitant]

REACTIONS (6)
  - Hyperammonaemia [None]
  - Acute respiratory distress syndrome [None]
  - Bronchopneumonia [None]
  - Pneumonia haemophilus [None]
  - Encephalopathy [None]
  - Glomerulonephritis proliferative [None]
